FAERS Safety Report 7599743-0 (Version None)
Quarter: 2011Q3

REPORT INFORMATION
  Report Type: 
  Country: None (occurrence: None)
  Receive Date: 20110711
  Receipt Date: 20110630
  Transmission Date: 20111222
  Serious: Yes (Other)
  Sender: FDA-Public Use
  Company Number: US-TEVA-288681USA

PATIENT
  Sex: Female
  Weight: 72.64 kg

DRUGS (11)
  1. COPAXONE [Suspect]
     Indication: MULTIPLE SCLEROSIS
     Dosage: 20 MILLIGRAM;
     Route: 058
  2. LEVOTHYROXINE SODIUM [Concomitant]
  3. ESCITALOPRAM OXALATE [Concomitant]
  4. DROSPIRENONE AND ETHINYL ESTRADIOL [Concomitant]
  5. DROSPIRENONE AND ETHINYL ESTRADIOL [Concomitant]
  6. LORATADINE [Concomitant]
  7. IBUPROFEN [Concomitant]
  8. ESCITALOPRAM OXALATE [Concomitant]
  9. LEVOTHYROXINE SODIUM [Concomitant]
  10. IBUPROFEN [Concomitant]
  11. LORATADINE [Concomitant]

REACTIONS (1)
  - ANAPHYLACTIC REACTION [None]
